FAERS Safety Report 25649901 (Version 1)
Quarter: 2025Q3

REPORT INFORMATION
  Report Type: Spontaneous
  Country: US (occurrence: None)
  Receive Date: 20250805
  Receipt Date: 20250805
  Transmission Date: 20251021
  Serious: Yes (unspecified)
  Sender: FDA-CTU
  Company Number: None

PATIENT
  Age: 76 Year
  Sex: Female
  Weight: 61.2 kg

DRUGS (1)
  1. MULTIHANCE [Suspect]
     Active Substance: GADOBENATE DIMEGLUMINE

REACTIONS (7)
  - Post procedural complication [None]
  - Nausea [None]
  - Vomiting [None]
  - Chest discomfort [None]
  - Chest pain [None]
  - Oral discomfort [None]
  - Presyncope [None]

NARRATIVE: CASE EVENT DATE: 20250802
